FAERS Safety Report 14784798 (Version 4)
Quarter: 2018Q2

REPORT INFORMATION
  Report Type: Report from Study
  Country: US (occurrence: US)
  Receive Date: 20180420
  Receipt Date: 20180627
  Transmission Date: 20180711
  Serious: Yes (Other)
  Sender: FDA-Public Use
  Company Number: US-SAOL THERAPEUTICS-2018SAO00561

PATIENT
  Age: 56 Year
  Sex: Female
  Weight: 106.58 kg

DRUGS (2)
  1. BACLOFEN. [Suspect]
     Active Substance: BACLOFEN
     Dosage: 62.45 ?G, \DAY
     Route: 037
     Dates: start: 20170912
  2. BACLOFEN. [Suspect]
     Active Substance: BACLOFEN
     Dosage: 72.28 ?G, \DAY- MAX
     Dates: start: 20170912

REACTIONS (1)
  - Wound dehiscence [Recovered/Resolved]

NARRATIVE: CASE EVENT DATE: 20171201
